FAERS Safety Report 4499343-5 (Version None)
Quarter: 2004Q4

REPORT INFORMATION
  Report Type: 
  Country: None (occurrence: None)
  Receive Date: 20041111
  Receipt Date: 20041105
  Transmission Date: 20050328
  Serious: Yes (Hospitalization)
  Sender: FDA-Public Use
  Company Number: US-MERCK-0411USA01001

PATIENT
  Sex: Male

DRUGS (2)
  1. FOSAMAX [Suspect]
     Route: 048
     Dates: start: 20040101
  2. CALCIUM (UNSPECIFIED) [Concomitant]
     Route: 065

REACTIONS (1)
  - SMALL INTESTINAL OBSTRUCTION [None]
